FAERS Safety Report 8996546 (Version 1)
Quarter: 2013Q1

REPORT INFORMATION
  Report Type: Spontaneous
  Country: US (occurrence: US)
  Receive Date: 20130104
  Receipt Date: 20130104
  Transmission Date: 20140127
  Serious: No
  Sender: FDA-Public Use
  Company Number: US-PFIZER INC-2012333234

PATIENT
  Age: 56 Year
  Sex: Female
  Weight: 62.13 kg

DRUGS (4)
  1. FLECTOR [Suspect]
     Indication: ARTHROPATHY
     Dosage: UNK, AS NEEDED
  2. DICLOFENAC [Suspect]
     Indication: ARTHRITIS
     Dosage: UNK, AS NEEDED
     Dates: start: 20120828
  3. IBUPROFEN [Concomitant]
     Indication: ARTHROPATHY
     Dosage: UNK
  4. IBUPROFEN [Concomitant]
     Indication: ARTHRITIS

REACTIONS (3)
  - Overdose [Unknown]
  - Somnolence [Unknown]
  - Fatigue [Unknown]
